FAERS Safety Report 18243268 (Version 1)
Quarter: 2020Q3

REPORT INFORMATION
  Report Type: Spontaneous
  Country: US (occurrence: US)
  Receive Date: 20200908
  Receipt Date: 20200908
  Transmission Date: 20201103
  Serious: No
  Sender: FDA-Public Use
  Company Number: US-HARMONY BIOSCIENCES-2020HMY00773

PATIENT
  Age: 38 Year
  Sex: Male
  Weight: 71.66 kg

DRUGS (6)
  1. WAKIX [Suspect]
     Active Substance: PITOLISANT HYDROCHLORIDE
     Dosage: 35.6 MG, 1X/DAY
     Route: 048
     Dates: start: 202005
  2. UNSPECIFIED OTC ANTIHISTAMINE [Concomitant]
  3. WAKIX [Suspect]
     Active Substance: PITOLISANT HYDROCHLORIDE
     Indication: NARCOLEPSY
     Dosage: 35.6 MG, 1X/DAY
     Route: 048
     Dates: start: 202001, end: 20200430
  4. RITALIN [Concomitant]
     Active Substance: METHYLPHENIDATE HYDROCHLORIDE
  5. XYREM [Concomitant]
     Active Substance: SODIUM OXYBATE
  6. PROSCAR [Concomitant]
     Active Substance: FINASTERIDE

REACTIONS (5)
  - Seasonal allergy [Recovered/Resolved]
  - Product dose omission issue [Recovered/Resolved]
  - Fatigue [Recovered/Resolved]
  - Rhinorrhoea [Recovered/Resolved]
  - Respiratory disorder [Recovered/Resolved]

NARRATIVE: CASE EVENT DATE: 202003
